FAERS Safety Report 6783602-7 (Version None)
Quarter: 2010Q2

REPORT INFORMATION
  Report Type: 
  Country: None (occurrence: None)
  Receive Date: 20100618
  Receipt Date: 20100526
  Transmission Date: 20101027
  Serious: Yes (Hospitalization)
  Sender: FDA-Public Use
  Company Number: 013886

PATIENT
  Sex: Male

DRUGS (2)
  1. CIMZIA [Suspect]
     Dosage: SUBCUTANEOUS
     Route: 058
  2. ANALGESICS [Suspect]
     Indication: PAIN

REACTIONS (4)
  - FATIGUE [None]
  - HIP FRACTURE [None]
  - INFREQUENT BOWEL MOVEMENTS [None]
  - ROAD TRAFFIC ACCIDENT [None]
